FAERS Safety Report 22019729 (Version 3)
Quarter: 2024Q4

REPORT INFORMATION
  Report Type: Spontaneous
  Country: JP (occurrence: JP)
  Receive Date: 20230222
  Receipt Date: 20241213
  Transmission Date: 20250114
  Serious: Yes (Death, Other)
  Sender: UNITED THERAPEUTICS
  Company Number: JP-UNITED THERAPEUTICS-UNT-2023-004648

PATIENT
  Age: 8 Year
  Sex: Female
  Weight: 23.3 kg

DRUGS (29)
  1. UNITUXIN [Suspect]
     Active Substance: DINUTUXIMAB
     Indication: Neuroblastoma recurrent
     Dosage: 17.5 MG/M2, CYCLICAL (CYCLE 1)
     Route: 041
     Dates: start: 20220905, end: 20220908
  2. UNITUXIN [Suspect]
     Active Substance: DINUTUXIMAB
     Dosage: 17.5 MG/M2, CYCLICAL (CYCLE 2)
     Route: 041
     Dates: start: 20221003, end: 20221006
  3. UNITUXIN [Suspect]
     Active Substance: DINUTUXIMAB
     Dosage: 17.5 MG/M2, CYCLICAL (CYCLE 3)
     Route: 041
     Dates: start: 20221108, end: 20221111
  4. UNITUXIN [Suspect]
     Active Substance: DINUTUXIMAB
     Dosage: 17.5 MG/M2, CYCLICAL (CYCLE 4)
     Route: 041
     Dates: start: 20221212, end: 20221215
  5. UNITUXIN [Suspect]
     Active Substance: DINUTUXIMAB
     Dosage: 17.5 MG/M2, CYCLICAL (CYCLE 5)
     Route: 041
     Dates: start: 20230104, end: 20230107
  6. FILGRASTIM [Concomitant]
     Active Substance: FILGRASTIM
     Indication: Neuroblastoma recurrent
     Dosage: 5 ?G/KG, QD
     Dates: start: 20220902, end: 20220915
  7. FILGRASTIM [Concomitant]
     Active Substance: FILGRASTIM
     Dosage: 5 ?G/KG, QD
     Dates: start: 20221105, end: 20221118
  8. FILGRASTIM [Concomitant]
     Active Substance: FILGRASTIM
     Dosage: 5 ?G/KG, QD
     Dates: start: 20230101, end: 20230114
  9. HYDROXYZINE [Concomitant]
     Active Substance: HYDROXYZINE HYDROCHLORIDE
     Indication: Prophylaxis
     Dosage: UNK
     Dates: start: 20220905, end: 20220909
  10. HYDROXYZINE [Concomitant]
     Active Substance: HYDROXYZINE HYDROCHLORIDE
     Dosage: UNK
     Dates: start: 20221003, end: 20221006
  11. HYDROXYZINE [Concomitant]
     Active Substance: HYDROXYZINE HYDROCHLORIDE
     Dosage: UNK
     Dates: start: 20221108, end: 20221112
  12. HYDROXYZINE [Concomitant]
     Active Substance: HYDROXYZINE HYDROCHLORIDE
     Dosage: UNK
     Dates: start: 20221212, end: 20221217
  13. HYDROXYZINE [Concomitant]
     Active Substance: HYDROXYZINE HYDROCHLORIDE
     Dosage: UNK
     Dates: start: 20230104, end: 20230108
  14. ACETAMINOPHEN [Concomitant]
     Active Substance: ACETAMINOPHEN
     Indication: Prophylaxis
     Dosage: UNK
     Dates: start: 20220905, end: 20220908
  15. ACETAMINOPHEN [Concomitant]
     Active Substance: ACETAMINOPHEN
     Dosage: UNK
     Dates: start: 20221003, end: 20221007
  16. ACETAMINOPHEN [Concomitant]
     Active Substance: ACETAMINOPHEN
     Dosage: UNK
     Dates: start: 20221108, end: 20221112
  17. ACETAMINOPHEN [Concomitant]
     Active Substance: ACETAMINOPHEN
     Dosage: UNK
     Dates: start: 20221212, end: 20221216
  18. ACETAMINOPHEN [Concomitant]
     Active Substance: ACETAMINOPHEN
     Dosage: UNK
     Dates: start: 20230104, end: 20230108
  19. MORPHINE HYDROCHLORIDE [Concomitant]
     Active Substance: MORPHINE HYDROCHLORIDE
     Indication: Prophylaxis
     Dosage: UNK
     Dates: start: 20220905, end: 20220909
  20. MORPHINE HYDROCHLORIDE [Concomitant]
     Active Substance: MORPHINE HYDROCHLORIDE
     Dosage: UNK
     Dates: start: 20221108, end: 20221112
  21. MORPHINE HYDROCHLORIDE [Concomitant]
     Active Substance: MORPHINE HYDROCHLORIDE
     Dosage: UNK
     Dates: start: 20221212, end: 20221216
  22. MORPHINE HYDROCHLORIDE [Concomitant]
     Active Substance: MORPHINE HYDROCHLORIDE
     Dosage: UNK
     Dates: start: 20230104, end: 20230108
  23. THROMBOMODULIN ALFA [Concomitant]
     Active Substance: THROMBOMODULIN ALFA
     Indication: Fibrin D dimer increased
     Dosage: UNK
     Dates: start: 20220906, end: 20220907
  24. TECELEUKIN [Concomitant]
     Active Substance: TECELEUKIN
     Indication: Neuroblastoma recurrent
     Dosage: 750,000 UNITS/M2
     Dates: start: 20220926, end: 20220929
  25. TECELEUKIN [Concomitant]
     Active Substance: TECELEUKIN
     Dosage: 1,000,000 UNITS/M2
     Dates: start: 20221003, end: 20221006
  26. TECELEUKIN [Concomitant]
     Active Substance: TECELEUKIN
     Dosage: 750,000 UNITS/M2
     Dates: start: 20221205, end: 20221208
  27. TECELEUKIN [Concomitant]
     Active Substance: TECELEUKIN
     Dosage: 1,000,000 UNITS/M2
     Dates: start: 20221212, end: 20221215
  28. ALBUMIN HUMAN [Concomitant]
     Active Substance: ALBUMIN HUMAN
     Indication: Hypoalbuminaemia
     Dosage: UNK
     Dates: start: 20221005, end: 20221006
  29. FUROSEMIDE [Concomitant]
     Active Substance: FUROSEMIDE
     Indication: Prophylaxis
     Dosage: UNK
     Dates: start: 20221213, end: 20221214

REACTIONS (4)
  - Neuroblastoma recurrent [Fatal]
  - Pyrexia [Recovered/Resolved]
  - Coagulopathy [Recovered/Resolved]
  - Hypoalbuminaemia [Recovered/Resolved]

NARRATIVE: CASE EVENT DATE: 20220906
